FAERS Safety Report 12138308 (Version 1)
Quarter: 2016Q1

REPORT INFORMATION
  Report Type: Spontaneous
  Country: PT (occurrence: PT)
  Receive Date: 20160302
  Receipt Date: 20160302
  Transmission Date: 20160526
  Serious: Yes (Other)
  Sender: FDA-Public Use
  Company Number: PT-MYLANLABS-2016M1008821

PATIENT

DRUGS (2)
  1. DIGOXIN. [Suspect]
     Active Substance: DIGOXIN
     Indication: ATRIAL FLUTTER
     Dosage: 0.75MG ID
     Route: 064
  2. SOTALOL. [Suspect]
     Active Substance: SOTALOL
     Indication: ATRIAL FLUTTER
     Dosage: 240MG ID
     Route: 064

REACTIONS (4)
  - Dilatation ventricular [Unknown]
  - Foetal exposure during pregnancy [Recovered/Resolved]
  - Right atrial dilatation [Unknown]
  - Premature baby [Unknown]
